FAERS Safety Report 5191559-8 (Version None)
Quarter: 2006Q4

REPORT INFORMATION
  Report Type: 
  Country: None (occurrence: None)
  Receive Date: 20061220
  Receipt Date: 20061220
  Transmission Date: 20070319
  Serious: Yes (Life-Threatening, Hospitalization)
  Sender: FDA-Public Use
  Company Number: None

PATIENT
  Age: 8 Year
  Sex: Male
  Weight: 38.5557 kg

DRUGS (1)
  1. PROTOPIC [Suspect]
     Indication: ECZEMA
     Dosage: AS NEEDED DAILY TOP
     Route: 061
     Dates: start: 20000801, end: 20010201

REACTIONS (3)
  - CARDIAC ARREST [None]
  - NON-HODGKIN'S LYMPHOMA [None]
  - RESPIRATORY DISTRESS [None]
